FAERS Safety Report 19637683 (Version 1)
Quarter: 2021Q3

REPORT INFORMATION
  Report Type: Spontaneous
  Country: CO (occurrence: CO)
  Receive Date: 20210729
  Receipt Date: 20210729
  Transmission Date: 20211014
  Serious: Yes (Other)
  Sender: FDA-Public Use
  Company Number: CO-PFIZER INC-2021906288

PATIENT
  Sex: Female

DRUGS (2)
  1. REAMPLA [Suspect]
     Active Substance: PALBOCICLIB
     Dosage: 75 MG
     Route: 048
  2. REAMPLA [Suspect]
     Active Substance: PALBOCICLIB
     Dosage: UNK
     Route: 048

REACTIONS (4)
  - Diabetes mellitus [Unknown]
  - Haemoglobin decreased [Recovered/Resolved]
  - Hypertension [Unknown]
  - Decreased immune responsiveness [Recovered/Resolved]
